FAERS Safety Report 5296105-6 (Version None)
Quarter: 2007Q2

REPORT INFORMATION
  Report Type: 
  Country: None (occurrence: None)
  Receive Date: 20070406
  Receipt Date: 20070328
  Transmission Date: 20071010
  Serious: Yes (Hospitalization)
  Sender: FDA-Public Use
  Company Number: 20052437

PATIENT
  Sex: Male

DRUGS (3)
  1. LIORESAL [Suspect]
     Indication: MUSCLE SPASTICITY
     Dosage: MCG, DAILY, INTRATHECAL
     Route: 037
  2. .. [Concomitant]
  3. .. [Concomitant]

REACTIONS (14)
  - BONE MARROW OEDEMA [None]
  - BRAIN OEDEMA [None]
  - CSF PROTEIN INCREASED [None]
  - DYSTONIA [None]
  - EATON-LAMBERT SYNDROME [None]
  - FIBROSIS [None]
  - GENERAL PHYSICAL HEALTH DETERIORATION [None]
  - HYPOTONIA [None]
  - IMPLANT SITE HYPERSENSITIVITY [None]
  - MEDICAL DEVICE COMPLICATION [None]
  - MOBILITY DECREASED [None]
  - MOTOR DYSFUNCTION [None]
  - MUSCULAR WEAKNESS [None]
  - POSTOPERATIVE ADHESION [None]
